FAERS Safety Report 13489119 (Version 1)
Quarter: 2017Q2

REPORT INFORMATION
  Report Type: Spontaneous
  Country: US (occurrence: US)
  Receive Date: 20170427
  Receipt Date: 20170427
  Transmission Date: 20170830
  Serious: No
  Sender: FDA-Public Use
  Company Number: US-DRREDDYS-DRL/USA/16/0079148

PATIENT
  Sex: Male

DRUGS (2)
  1. ZIPRASIDONE. [Suspect]
     Active Substance: ZIPRASIDONE
     Indication: IMMUNE SYSTEM DISORDER
     Route: 065
     Dates: start: 20160310
  2. ZIPRASIDONE. [Suspect]
     Active Substance: ZIPRASIDONE
     Route: 065

REACTIONS (2)
  - Product use in unapproved indication [Unknown]
  - Hunger [Not Recovered/Not Resolved]
